FAERS Safety Report 7110291-4 (Version None)
Quarter: 2010Q4

REPORT INFORMATION
  Report Type: 
  Country: None (occurrence: None)
  Receive Date: 20101118
  Receipt Date: 20101108
  Transmission Date: 20110411
  Serious: Yes (Other)
  Sender: FDA-Public Use
  Company Number: ZA-SANOFI-AVENTIS-2010SA066313

PATIENT
  Age: 74 Year
  Sex: Female

DRUGS (7)
  1. CLOPIDOGREL WINTHROP [Suspect]
     Indication: ANGIOPLASTY
     Route: 048
     Dates: start: 20101008, end: 20101027
  2. CLOPIDOGREL WINTHROP [Suspect]
     Route: 048
     Dates: start: 20101008, end: 20101027
  3. CIPALAT [Concomitant]
     Indication: BLOOD PRESSURE ABNORMAL
     Dosage: DOSE:1 UNIT(S)
     Route: 048
  4. LEVOTHYROXINE SODIUM [Concomitant]
     Route: 048
  5. CONJUGATED ESTROGENS [Concomitant]
     Indication: HORMONE REPLACEMENT THERAPY
     Route: 048
  6. DISPRIN [Concomitant]
     Dosage: DOSE:0.5 UNIT(S)
     Route: 048
  7. ACC 200 [Concomitant]
     Indication: ASTHMA
     Route: 055

REACTIONS (10)
  - ABDOMINAL PAIN UPPER [None]
  - CHEST PAIN [None]
  - CONDITION AGGRAVATED [None]
  - DIARRHOEA [None]
  - DIZZINESS [None]
  - FIBROMYALGIA [None]
  - HEADACHE [None]
  - PNEUMONIA [None]
  - PYREXIA [None]
  - STOMATITIS [None]
